FAERS Safety Report 13379556 (Version 2)
Quarter: 2017Q2

REPORT INFORMATION
  Report Type: Report from Study
  Country: US (occurrence: US)
  Receive Date: 20170328
  Receipt Date: 20170425
  Transmission Date: 20170830
  Serious: Yes (Hospitalization, Other)
  Sender: FDA-Public Use
  Company Number: US-GILEAD-2017-0263853

PATIENT
  Age: 55 Year
  Sex: Female

DRUGS (22)
  1. FOSAMAX [Concomitant]
     Active Substance: ALENDRONATE SODIUM
     Dosage: 70 MG, Q1WK
     Route: 048
     Dates: start: 20160420
  2. MIRTAZAPINE. [Concomitant]
     Active Substance: MIRTAZAPINE
     Dosage: 15 MG, QD
     Route: 048
     Dates: start: 20161214
  3. OXYCODONE [Concomitant]
     Active Substance: OXYCODONE
     Dosage: 5 MG, PRN
     Route: 048
     Dates: start: 20161214
  4. ZOLPIDEM [Concomitant]
     Active Substance: ZOLPIDEM\ZOLPIDEM TARTRATE
     Dosage: 5 MG, QD PRN
     Route: 048
     Dates: start: 20151118
  5. BENZONATATE. [Concomitant]
     Active Substance: BENZONATATE
     Dosage: 200 MG, PRN
     Route: 048
     Dates: start: 20161214
  6. SERTRALINE [Concomitant]
     Active Substance: SERTRALINE HYDROCHLORIDE
     Dosage: 100 MG, QD
     Route: 048
     Dates: start: 20161214
  7. SINGULAIR [Concomitant]
     Active Substance: MONTELUKAST SODIUM
     Dosage: 10 MG, QD
     Route: 048
     Dates: start: 20161214
  8. BAT [Concomitant]
     Active Substance: EQUINE BOTULINUM NEUROTOXIN A/B/C/D/E/F/G IMMUNE FAB2
     Dosage: 4,500 UNIT - 3,300 UNIT
     Route: 042
     Dates: start: 20151118
  9. OMEPRAZOLE. [Concomitant]
     Active Substance: OMEPRAZOLE
     Dosage: 40 MG, QD
     Route: 048
     Dates: start: 20170411
  10. PREDNISOLONE. [Concomitant]
     Active Substance: PREDNISOLONE
     Dosage: 5 MG, QD
     Route: 065
     Dates: start: 20161214
  11. FIORICET [Concomitant]
     Active Substance: ACETAMINOPHEN\BUTALBITAL\CAFFEINE
     Dosage: 50 MG-300 MG-40 MG, PRN
     Route: 048
     Dates: start: 20161214
  12. PLAQUENIL                          /00072602/ [Concomitant]
     Active Substance: HYDROXYCHLOROQUINE DIPHOSPHATE
     Dosage: 200 MG, QD
     Route: 048
     Dates: start: 20160420
  13. LEDIPASVIR/SOFOSBUVIR [Suspect]
     Active Substance: LEDIPASVIR\SOFOSBUVIR
     Indication: HEPATITIS C
     Dosage: 1 DF, UNK
     Route: 048
     Dates: start: 20170125, end: 20170322
  14. OXYBUTYNIN CHLORIDE. [Concomitant]
     Active Substance: OXYBUTYNIN CHLORIDE
     Dosage: 15 MG, QD
     Route: 048
     Dates: start: 20170207
  15. VITAMIN D2 [Concomitant]
     Active Substance: ERGOCALCIFEROL
     Dosage: 50000 IU, Q1WK
     Route: 048
     Dates: start: 20161214
  16. BREO ELLIPTA [Concomitant]
     Active Substance: FLUTICASONE FUROATE\VILANTEROL TRIFENATATE
     Dosage: 100 MCG-25 MCG  1 PUFF QD
     Route: 055
     Dates: start: 20151118
  17. FUROSEMIDE. [Concomitant]
     Active Substance: FUROSEMIDE
     Dosage: 20 MG, QOD
     Route: 048
     Dates: start: 20170126
  18. TRAZODONE [Concomitant]
     Active Substance: TRAZODONE HYDROCHLORIDE
     Dosage: 50 MG, QHS
     Route: 048
     Dates: start: 20151118
  19. FLEXERIL [Concomitant]
     Active Substance: CYCLOBENZAPRINE HYDROCHLORIDE
     Dosage: 10 MG, TID
     Route: 048
     Dates: start: 20160420
  20. LORATADINE. [Concomitant]
     Active Substance: LORATADINE
     Dosage: 10 MG, BID
     Route: 048
     Dates: start: 20140922
  21. PREGABALIN. [Concomitant]
     Active Substance: PREGABALIN
     Dosage: 100 MG, TID
     Route: 048
     Dates: start: 20161214
  22. PROAIR HFA [Concomitant]
     Active Substance: ALBUTEROL SULFATE
     Dosage: 90 UG, 2 PUFFS Q4H PRN
     Route: 055
     Dates: start: 20170207

REACTIONS (1)
  - Pneumonia [Recovered/Resolved]

NARRATIVE: CASE EVENT DATE: 20170317
